FAERS Safety Report 19438006 (Version 3)
Quarter: 2021Q2

REPORT INFORMATION
  Report Type: Spontaneous
  Country: JP (occurrence: JP)
  Receive Date: 20210618
  Receipt Date: 20210630
  Transmission Date: 20210717
  Serious: Yes (Hospitalization, Disabling, Other)
  Sender: FDA-Public Use
  Company Number: JP-PFIZER INC-2021693516

PATIENT
  Age: 71 Year
  Sex: Female
  Weight: 44 kg

DRUGS (14)
  1. MEKTOVI [Suspect]
     Active Substance: BINIMETINIB
     Indication: MALIGNANT MELANOMA
     Dosage: 45 MG, Q12H
     Route: 048
     Dates: start: 20210113, end: 20210123
  2. TRAZENTA [Concomitant]
     Active Substance: LINAGLIPTIN
     Dosage: UNK
     Route: 048
  3. YERVOY [Suspect]
     Active Substance: IPILIMUMAB
     Indication: MALIGNANT MELANOMA
     Dosage: 3 MG/KG, Q3W
     Route: 041
     Dates: start: 20200623, end: 20200909
  4. SUREPOST [Concomitant]
     Active Substance: REPAGLINIDE
     Dosage: UNK
     Route: 048
  5. OPDIVO [Suspect]
     Active Substance: NIVOLUMAB
     Indication: MALIGNANT MELANOMA
     Dosage: 80 MG, Q3W, ?2020/09/09
     Route: 041
     Dates: start: 20200623, end: 20200909
  6. TAFINLAR [Suspect]
     Active Substance: DABRAFENIB MESYLATE
     Dosage: UNK
     Route: 048
     Dates: start: 20201012, end: 20201026
  7. MEKINIST [Suspect]
     Active Substance: TRAMETINIB DIMETHYL SULFOXIDE
     Dosage: UNK
     Route: 065
     Dates: start: 20201012, end: 20201026
  8. JANUVIA [Concomitant]
     Active Substance: SITAGLIPTIN PHOSPHATE
     Dosage: UNK
     Route: 065
  9. TRAZENTA [Concomitant]
     Active Substance: LINAGLIPTIN
     Dosage: UNK
     Route: 048
  10. BRAFTOVI [Suspect]
     Active Substance: ENCORAFENIB
     Indication: MALIGNANT MELANOMA
     Dosage: 450 MG, DAILY
     Route: 048
     Dates: start: 20210113, end: 20210123
  11. MEKTOVI [Suspect]
     Active Substance: BINIMETINIB
     Dosage: UNK UNK, Q12H
     Route: 048
  12. RECALBON [MINODRONIC ACID] [Suspect]
     Active Substance: MINODRONIC ACID
     Indication: OSTEOPOROSIS
     Dosage: UNK
     Route: 048
  13. FAMOTIDINE. [Concomitant]
     Active Substance: FAMOTIDINE
     Dosage: UNK
     Route: 048
  14. SUREPOST [Concomitant]
     Active Substance: REPAGLINIDE
     Dosage: UNK
     Route: 048

REACTIONS (24)
  - Erythema [Recovered/Resolved]
  - Hypothyroidism [Recovering/Resolving]
  - Blood lactate dehydrogenase increased [Unknown]
  - Nausea [Recovering/Resolving]
  - Decreased appetite [Unknown]
  - Dysphagia [Unknown]
  - Liver disorder [Not Recovered/Not Resolved]
  - Blood thyroid stimulating hormone decreased [Unknown]
  - Encephalitis autoimmune [Recovered/Resolved with Sequelae]
  - Palpitations [Not Recovered/Not Resolved]
  - Pyrexia [Unknown]
  - Diarrhoea [Recovering/Resolving]
  - Disorientation [Recovering/Resolving]
  - Thyroiditis [Recovering/Resolving]
  - Adrenal insufficiency [Recovered/Resolved]
  - Hyperthyroidism [Recovering/Resolving]
  - Rash papular [Recovering/Resolving]
  - C-reactive protein increased [Unknown]
  - Adrenocorticotropic hormone deficiency [Recovering/Resolving]
  - Erythema [Unknown]
  - Renal impairment [Unknown]
  - Erythema multiforme [Unknown]
  - Type 2 diabetes mellitus [Recovering/Resolving]
  - Hyperhidrosis [Not Recovered/Not Resolved]

NARRATIVE: CASE EVENT DATE: 202007
